FAERS Safety Report 8839373 (Version 1)
Quarter: 2012Q4

REPORT INFORMATION
  Report Type: 
  Country: FR (occurrence: FR)
  Receive Date: 20121015
  Receipt Date: 20121015
  Transmission Date: 20130627
  Serious: Yes (Hospitalization)
  Sender: FDA-Public Use
  Company Number: FR-JNJFOC-20121003181

PATIENT
  Age: 42 Year
  Sex: Female

DRUGS (3)
  1. REMICADE [Suspect]
     Indication: CROHN^S DISEASE
     Route: 042
     Dates: start: 20120222, end: 20120807
  2. COOLMETEC [Concomitant]
     Route: 048
  3. OLMESARTAN MEDOXOMIL [Concomitant]
     Route: 065

REACTIONS (2)
  - Autoimmune hepatitis [Not Recovered/Not Resolved]
  - Cholangitis sclerosing [Unknown]
